FAERS Safety Report 4743789-4 (Version None)
Quarter: 2005Q3

REPORT INFORMATION
  Report Type: 
  Country: None (occurrence: None)
  Receive Date: 20050809
  Receipt Date: 20050809
  Transmission Date: 20060218
  Serious: Yes (Hospitalization)
  Sender: FDA-Public Use
  Company Number: 2005FR-00158

PATIENT
  Age: 84 Year
  Sex: Female

DRUGS (11)
  1. ASPIRIN [Suspect]
     Indication: MYOCARDIAL ISCHAEMIA
     Dosage: 75 MG, OM, ORAL
     Route: 048
     Dates: end: 20050630
  2. DICLOFENAC [Concomitant]
  3. SENNA [Concomitant]
  4. ISOSORBIDE MONONITRATE [Concomitant]
  5. CALCICHEW D3 [Concomitant]
  6. LACTULOSE [Concomitant]
  7. SIMVASTATIN [Concomitant]
  8. BIPROPOLOL [Concomitant]
  9. LASARTAN [Concomitant]
  10. PARACETAMOL [Concomitant]
  11. FUROSEMIDE [Concomitant]

REACTIONS (3)
  - DUODENAL ULCER [None]
  - HAEMATEMESIS [None]
  - MELAENA [None]
